FAERS Safety Report 10506769 (Version 1)
Quarter: 2014Q4

REPORT INFORMATION
  Report Type: Spontaneous
  Country: ES (occurrence: ES)
  Receive Date: 20141009
  Receipt Date: 20141009
  Transmission Date: 20150528
  Serious: Yes (Death)
  Sender: FDA-Public Use
  Company Number: ES-TEVA-513566ISR

PATIENT
  Age: 74 Year
  Sex: Female

DRUGS (10)
  1. ETOPOSIDE. [Suspect]
     Active Substance: ETOPOSIDE
     Indication: BURKITT^S LYMPHOMA
     Route: 065
     Dates: start: 200908
  2. RASBURICASE [Suspect]
     Active Substance: RASBURICASE
     Indication: BURKITT^S LYMPHOMA
     Route: 065
     Dates: start: 200908
  3. CYTARABINE. [Suspect]
     Active Substance: CYTARABINE
     Indication: BURKITT^S LYMPHOMA
     Route: 065
     Dates: start: 200908
  4. CYTARABINE. [Suspect]
     Active Substance: CYTARABINE
     Indication: BURKITT^S LYMPHOMA
     Dosage: LIPOSOMAL
     Route: 037
     Dates: start: 200908
  5. DEXAMETHASONE. [Suspect]
     Active Substance: DEXAMETHASONE
     Indication: BURKITT^S LYMPHOMA
     Route: 065
     Dates: start: 200908
  6. METHOTREXATE [Suspect]
     Active Substance: METHOTREXATE
     Indication: BURKITT^S LYMPHOMA
     Route: 065
     Dates: start: 200908
  7. IFOSFAMIDE. [Suspect]
     Active Substance: IFOSFAMIDE
     Indication: BURKITT^S LYMPHOMA
     Route: 065
     Dates: start: 200908
  8. RITUXIMAB [Suspect]
     Active Substance: RITUXIMAB
     Indication: BURKITT^S LYMPHOMA
     Route: 065
     Dates: start: 200908
  9. CYCLOPHOSPHAMIDE. [Suspect]
     Active Substance: CYCLOPHOSPHAMIDE
     Indication: BURKITT^S LYMPHOMA
     Route: 065
     Dates: start: 200908
  10. PREDNISONE. [Suspect]
     Active Substance: PREDNISONE
     Indication: BURKITT^S LYMPHOMA
     Route: 065
     Dates: start: 200908

REACTIONS (5)
  - Neutropenia [Fatal]
  - Respiratory failure [Fatal]
  - Systemic mycosis [Fatal]
  - Candida infection [Fatal]
  - Staphylococcal infection [Fatal]
